FAERS Safety Report 24093032 (Version 1)
Quarter: 2024Q3

REPORT INFORMATION
  Report Type: Spontaneous
  Country: US (occurrence: US)
  Receive Date: 20240715
  Receipt Date: 20240715
  Transmission Date: 20241017
  Serious: No
  Sender: SANDOZ
  Company Number: US-SANDOZ-SDZ2024US064592

PATIENT

DRUGS (1)
  1. ESTRADIOL [Suspect]
     Active Substance: ESTRADIOL
     Indication: Product used for unknown indication
     Dosage: 0.05 MG, I STARTED THE PATCHES ABOUT 9 MONTHS AGO APPROXIMATELY
     Route: 062

REACTIONS (3)
  - Product residue present [Unknown]
  - Circumstance or information capable of leading to device use error [Unknown]
  - Product adhesion issue [Unknown]
